FAERS Safety Report 24351047 (Version 1)
Quarter: 2024Q3

REPORT INFORMATION
  Report Type: Report from Study
  Country: AT (occurrence: AT)
  Receive Date: 20240923
  Receipt Date: 20240923
  Transmission Date: 20241016
  Serious: No
  Sender: ROCHE
  Company Number: AT-ROCHE-2544127

PATIENT
  Age: 64 Year
  Sex: Female
  Weight: 80.4 kg

DRUGS (80)
  1. HERCEPTIN [Suspect]
     Active Substance: TRASTUZUMAB
     Indication: HER2 positive breast cancer
     Route: 042
     Dates: start: 20170224, end: 20170224
  2. HERCEPTIN [Suspect]
     Active Substance: TRASTUZUMAB
     Route: 042
     Dates: start: 20200422, end: 20200615
  3. HERCEPTIN [Suspect]
     Active Substance: TRASTUZUMAB
     Route: 042
     Dates: start: 20201230, end: 20210210
  4. HERCEPTIN [Suspect]
     Active Substance: TRASTUZUMAB
     Route: 042
     Dates: start: 20210317, end: 20210428
  5. HERCEPTIN [Suspect]
     Active Substance: TRASTUZUMAB
     Route: 042
     Dates: start: 20170317, end: 20170317
  6. HERCEPTIN [Suspect]
     Active Substance: TRASTUZUMAB
     Route: 042
     Dates: start: 20170410, end: 20170427
  7. HERCEPTIN [Suspect]
     Active Substance: TRASTUZUMAB
     Route: 042
     Dates: start: 20170519, end: 20170519
  8. HERCEPTIN [Suspect]
     Active Substance: TRASTUZUMAB
     Route: 042
     Dates: start: 20170609, end: 20170630
  9. HERCEPTIN [Suspect]
     Active Substance: TRASTUZUMAB
     Route: 042
     Dates: start: 20170720, end: 20170720
  10. HERCEPTIN [Suspect]
     Active Substance: TRASTUZUMAB
     Route: 042
     Dates: start: 20170810, end: 20190213
  11. PERJETA [Suspect]
     Active Substance: PERTUZUMAB
     Indication: HER2 positive breast cancer
     Route: 042
     Dates: start: 20170224, end: 20170224
  12. PERJETA [Suspect]
     Active Substance: PERTUZUMAB
     Dosage: FREQUENCY VARIED OVER TIME(FROM 3 WEEKS TO 24DAYS)
     Route: 042
     Dates: start: 20170317, end: 20190213
  13. PERJETA [Suspect]
     Active Substance: PERTUZUMAB
     Route: 042
     Dates: start: 20210317, end: 20210428
  14. PERJETA [Suspect]
     Active Substance: PERTUZUMAB
     Route: 042
     Dates: start: 20200422, end: 20200615
  15. KADCYLA [Suspect]
     Active Substance: ADO-TRASTUZUMAB EMTANSINE
     Indication: HER2 positive breast cancer
     Route: 042
     Dates: start: 20190306, end: 20190909
  16. FASLODEX [Suspect]
     Active Substance: FULVESTRANT
     Indication: HER2 positive breast cancer
     Route: 058
     Dates: start: 20171002, end: 20171115
  17. FASLODEX [Suspect]
     Active Substance: FULVESTRANT
     Route: 058
     Dates: start: 20171116, end: 20191001
  18. TAXOTERE [Suspect]
     Active Substance: DOCETAXEL
     Indication: HER2 positive breast cancer
     Route: 042
     Dates: start: 20170224, end: 20170317
  19. TAXOTERE [Suspect]
     Active Substance: DOCETAXEL
     Route: 042
     Dates: start: 20170410, end: 20170427
  20. TAXOTERE [Suspect]
     Active Substance: DOCETAXEL
     Route: 042
     Dates: start: 20170519, end: 20170519
  21. TAXOTERE [Suspect]
     Active Substance: DOCETAXEL
     Route: 042
     Dates: start: 20170609, end: 20170630
  22. TAXOTERE [Suspect]
     Active Substance: DOCETAXEL
     Route: 042
     Dates: start: 20210317, end: 20210428
  23. LACTULOSE [Concomitant]
     Active Substance: LACTULOSE
  24. XGEVA [Concomitant]
     Active Substance: DENOSUMAB
     Dosage: ONGOING = CHECKED
     Dates: start: 20170202
  25. CALCIUM CARBONATE\CHOLECALCIFEROL [Concomitant]
     Active Substance: CALCIUM CARBONATE\CHOLECALCIFEROL
     Dosage: ONGOING = CHECKED
     Dates: start: 20170203
  26. EDOXABAN TOSYLATE [Concomitant]
     Active Substance: EDOXABAN TOSYLATE
     Dosage: ONGOING = NOT CHECKED
     Dates: start: 20181228, end: 20191015
  27. PREGABALIN [Concomitant]
     Active Substance: PREGABALIN
     Dosage: ONGOING = NOT CHECKED
     Dates: start: 20180124, end: 20190820
  28. EUTHYROX [Concomitant]
     Active Substance: LEVOTHYROXINE SODIUM
     Dosage: ONGOING = CHECKED
     Dates: start: 20170303
  29. OLEOVIT [COLECALCIFEROL-CHOLESTERIN] [Concomitant]
     Dosage: ONGOING = CHECKED
     Dates: start: 20170329
  30. FUROSEMIDE [Concomitant]
     Active Substance: FUROSEMIDE
  31. PANTOPRAZOLE SODIUM [Concomitant]
     Active Substance: PANTOPRAZOLE SODIUM
  32. POLYETHYLENE GLYCOL 3350\POTASSIUM CHLORIDE\SODIUM BICARBONATE\SODIUM [Concomitant]
     Active Substance: POLYETHYLENE GLYCOL 3350\POTASSIUM CHLORIDE\SODIUM BICARBONATE\SODIUM CHLORIDE
  33. NOVALGIN (AUSTRIA) [Concomitant]
  34. LASIX [Concomitant]
     Active Substance: FUROSEMIDE
  35. KCL [Concomitant]
     Active Substance: POTASSIUM CHLORIDE
  36. ONDANSETRON HYDROCHLORIDE [Concomitant]
     Active Substance: ONDANSETRON HYDROCHLORIDE
  37. PARACODIN [Concomitant]
  38. TAZOBACTAM [Concomitant]
     Active Substance: TAZOBACTAM
  39. LOVENOX [Concomitant]
     Active Substance: ENOXAPARIN SODIUM
  40. FILGRASTIM [Concomitant]
     Active Substance: FILGRASTIM
  41. AUGMENTIN [Concomitant]
     Active Substance: AMOXICILLIN\CLAVULANATE POTASSIUM
  42. DEXAMETHASONE [Concomitant]
     Active Substance: DEXAMETHASONE
  43. XICLAV (AUSTRIA) [Concomitant]
  44. MOTRIM (AUSTRIA) [Concomitant]
  45. TRAZODONE HYDROCHLORIDE [Concomitant]
     Active Substance: TRAZODONE HYDROCHLORIDE
  46. OLIVE OIL [Concomitant]
     Active Substance: OLIVE OIL
  47. DIPRODERM (AUSTRIA) [Concomitant]
  48. ACTIMARIS [Concomitant]
  49. KALIORAL (AUSTRIA) [Concomitant]
  50. EMEND [Concomitant]
     Active Substance: APREPITANT
  51. EDOXABAN TOSYLATE [Concomitant]
     Active Substance: EDOXABAN TOSYLATE
  52. BETAISODONA [Concomitant]
     Active Substance: POVIDONE-IODINE
  53. NERIFORTE [Concomitant]
  54. LEUKICHTAN (AUSTRIA) [Concomitant]
  55. LEVOFLOXACIN [Concomitant]
     Active Substance: LEVOFLOXACIN
  56. FENTANYL [Concomitant]
     Active Substance: FENTANYL\FENTANYL CITRATE
  57. ZOFRAN [Concomitant]
     Active Substance: ONDANSETRON HYDROCHLORIDE
  58. PASPERTIN [Concomitant]
  59. SILICON [Concomitant]
     Active Substance: SILICON
  60. AMOXICILLIN\CLAVULANATE POTASSIUM [Concomitant]
     Active Substance: AMOXICILLIN\CLAVULANATE POTASSIUM
  61. HYDROMORPHONE HYDROCHLORIDE [Concomitant]
     Active Substance: HYDROMORPHONE HYDROCHLORIDE
  62. CEFEPIME [Concomitant]
     Active Substance: CEFEPIME HYDROCHLORIDE
  63. LIDOCAINE [Concomitant]
     Active Substance: LIDOCAINE
  64. CARBOXYMETHYLCELLULOSE SODIUM [Concomitant]
     Active Substance: CARBOXYMETHYLCELLULOSE SODIUM
  65. FILGRASTIM [Concomitant]
     Active Substance: FILGRASTIM
  66. MORPHINE [Concomitant]
     Active Substance: MORPHINE
  67. ZIEXTENZO [Concomitant]
     Active Substance: PEGFILGRASTIM-BMEZ
  68. ONDANSETRON [Concomitant]
     Active Substance: ONDANSETRON
  69. AMPHO-MORONAL [Concomitant]
     Active Substance: AMPHOTERICIN B
  70. ALPRAZOLAM [Concomitant]
     Active Substance: ALPRAZOLAM
  71. TEMESTA [Concomitant]
  72. VITAMIN C [Concomitant]
     Active Substance: ASCORBIC ACID
  73. HALSET [Concomitant]
  74. DROPERIDOL [Concomitant]
     Active Substance: DROPERIDOL
  75. SCOTTOPECT [Concomitant]
  76. PONVERIDOL [Concomitant]
  77. LORAZEPAM [Concomitant]
     Active Substance: LORAZEPAM
  78. BUTYLSCOPOLAMINE BROMIDE [Concomitant]
     Active Substance: BUTYLSCOPOLAMINE BROMIDE
  79. DRONABINOL [Concomitant]
     Active Substance: DRONABINOL
  80. HYALURONATE SODIUM [Concomitant]
     Active Substance: HYALURONATE SODIUM

REACTIONS (1)
  - Dyspnoea [Recovered/Resolved]

NARRATIVE: CASE EVENT DATE: 20190401
